FAERS Safety Report 4509739-0 (Version None)
Quarter: 2004Q4

REPORT INFORMATION
  Report Type: 
  Country: None (occurrence: None)
  Receive Date: 20041119
  Receipt Date: 20041105
  Transmission Date: 20050328
  Serious: Yes (Hospitalization)
  Sender: FDA-Public Use
  Company Number: DSA_70518_2004

PATIENT
  Age: 64 Year
  Sex: Female

DRUGS (10)
  1. DARVOCET-N 100 [Suspect]
     Indication: PAIN
     Dosage: DF PO
     Route: 048
     Dates: start: 20041021, end: 20041027
  2. XYOTAX [Suspect]
     Indication: OVARIAN CANCER
     Dosage: 306 MG Q3WKS IV
     Route: 042
     Dates: start: 20040618, end: 20041013
  3. CARBOPLATIN [Suspect]
     Indication: OVARIAN CANCER
     Dosage: 724 MG Q3WKS IV
     Route: 042
     Dates: start: 20040618, end: 20041013
  4. DURAGESIC [Suspect]
     Indication: PAIN
     Dosage: 50 MG QDAY TD
     Dates: start: 20041021, end: 20041027
  5. DILAUDID [Suspect]
     Indication: PAIN
     Dosage: DF QDAY PO
     Route: 048
     Dates: start: 20041021, end: 20041027
  6. SYNTHROID [Concomitant]
  7. VASOTEC [Concomitant]
  8. MAGNESIUM OXIDE [Concomitant]
  9. ZOFRAN [Concomitant]
  10. ATIVAN [Concomitant]

REACTIONS (10)
  - ABDOMINAL SYMPTOM [None]
  - BLADDER NEOPLASM [None]
  - COMPUTERISED TOMOGRAM ABNORMAL [None]
  - ILEUS [None]
  - INTERVERTEBRAL DISC COMPRESSION [None]
  - METASTATIC NEOPLASM [None]
  - OSTEOARTHRITIS [None]
  - SPINAL COMPRESSION FRACTURE [None]
  - SPINAL DEFORMITY [None]
  - THROMBOSIS [None]
